FAERS Safety Report 8817793 (Version 1)
Quarter: 2012Q4

REPORT INFORMATION
  Report Type: Report from Study
  Country: NL (occurrence: NL)
  Receive Date: 20121001
  Receipt Date: 20121001
  Transmission Date: 20130627
  Serious: Yes (Hospitalization)
  Sender: FDA-Public Use
  Company Number: PHHO2012NL014081

PATIENT
  Age: 55 Year
  Sex: Female

DRUGS (3)
  1. EVEROLIMUS [Suspect]
     Indication: BREAST CANCER METASTATIC
     Dosage: 10 mg, QD
     Route: 048
     Dates: start: 20120718, end: 20120914
  2. EXEMESTANE [Suspect]
     Indication: BREAST CANCER METASTATIC
     Dosage: 25 mg, QD
     Route: 048
     Dates: start: 20120718
  3. AUGMENTIN [Concomitant]
     Indication: URINARY TRACT INFECTION
     Dosage: 1375 mg, QD
     Route: 048
     Dates: start: 20120914, end: 20120924

REACTIONS (1)
  - Febrile neutropenia [Not Recovered/Not Resolved]
